FAERS Safety Report 12120901 (Version 1)
Quarter: 2016Q1

REPORT INFORMATION
  Report Type: Spontaneous
  Country: US (occurrence: US)
  Receive Date: 20160226
  Receipt Date: 20160226
  Transmission Date: 20160526
  Serious: No
  Sender: FDA-Public Use
  Company Number: US-ALLERGAN-1200972US

PATIENT
  Age: 70 Year
  Sex: Male

DRUGS (6)
  1. REFRESH CLASSIC [Suspect]
     Active Substance: POLYVINYL ALCOHOL\POVIDONE
     Indication: DRY EYE
     Dosage: 12 GTT, QD
     Route: 047
     Dates: start: 2011, end: 20120126
  2. ACYCLOVIR                          /00587301/ [Suspect]
     Active Substance: ACYCLOVIR
     Indication: GENITAL HERPES
     Dosage: UNK
     Dates: start: 2011
  3. VALTREX [Concomitant]
     Active Substance: VALACYCLOVIR HYDROCHLORIDE
     Indication: GENITAL HERPES
     Dosage: UNK
     Dates: end: 2011
  4. REFRESH OPTIVE SENSITIVE [Suspect]
     Active Substance: CARBOXYMETHYLCELLULOSE SODIUM\GLYCERIN
     Indication: DRY EYE
     Dosage: UNK
     Route: 047
     Dates: start: 20120127
  5. LUBRIFRESH PM [Concomitant]
     Indication: DRY EYE
     Dosage: UNK
     Route: 047
  6. PRED FORTE MILD [Concomitant]
     Indication: CORNEAL TRANSPLANT
     Dosage: UNK
     Route: 047

REACTIONS (2)
  - Pruritus [Recovered/Resolved]
  - Burning sensation [Not Recovered/Not Resolved]

NARRATIVE: CASE EVENT DATE: 2011
